FAERS Safety Report 25698185 (Version 2)
Quarter: 2025Q3

REPORT INFORMATION
  Report Type: Spontaneous
  Country: US (occurrence: US)
  Receive Date: 20250819
  Receipt Date: 20250829
  Transmission Date: 20251020
  Serious: No
  Sender: ROCHE
  Company Number: US-ROCHE-10000361017

PATIENT
  Age: 45 Year
  Sex: Female

DRUGS (1)
  1. XOLAIR [Suspect]
     Active Substance: OMALIZUMAB
     Indication: Asthma
     Route: 058
     Dates: start: 20250808

REACTIONS (2)
  - Throat irritation [Not Recovered/Not Resolved]
  - Respiratory tract inflammation [Unknown]

NARRATIVE: CASE EVENT DATE: 20250808
